FAERS Safety Report 5512641-9 (Version None)
Quarter: 2007Q4

REPORT INFORMATION
  Report Type: 
  Country: None (occurrence: None)
  Receive Date: 20071107
  Receipt Date: 20071022
  Transmission Date: 20080405
  Serious: Yes (Hospitalization, Other)
  Sender: FDA-Public Use
  Company Number: 10E20071572

PATIENT
  Age: 19 Year
  Sex: Male

DRUGS (2)
  1. SOMATULINE DEPOT [Suspect]
     Indication: OBESITY
     Dosage: 60 MG (60MG, 1 IN 1 M) SUBCUTANEOUS
     Route: 058
     Dates: start: 20070601
  2. GENOTROPIN [Concomitant]

REACTIONS (5)
  - CHOLELITHIASIS [None]
  - DIABETES MELLITUS [None]
  - HYPERTRIGLYCERIDAEMIA [None]
  - INSULIN RESISTANCE [None]
  - LIVER DISORDER [None]
